FAERS Safety Report 15286539 (Version 1)
Quarter: 2018Q3

REPORT INFORMATION
  Report Type: Spontaneous
  Country: JP (occurrence: JP)
  Receive Date: 20180816
  Receipt Date: 20180816
  Transmission Date: 20181010
  Serious: Yes (Other)
  Sender: FDA-Public Use
  Company Number: PHJP2018JP015057

PATIENT
  Age: 64 Year
  Sex: Female

DRUGS (2)
  1. LETROZOLE. [Suspect]
     Active Substance: LETROZOLE
     Indication: BREAST CANCER STAGE II
     Dosage: UNK
     Route: 048
     Dates: start: 201801
  2. UFT [Concomitant]
     Active Substance: TEGAFUR\URACIL
     Indication: BREAST CANCER STAGE II
     Dosage: UNK
     Route: 065
     Dates: start: 201801

REACTIONS (6)
  - Autoimmune hepatitis [Unknown]
  - Jaundice [Unknown]
  - Faeces pale [Unknown]
  - Hepatic enzyme increased [Unknown]
  - Nausea [Unknown]
  - Hepatic function abnormal [Recovering/Resolving]

NARRATIVE: CASE EVENT DATE: 201802
